FAERS Safety Report 15347025 (Version 1)
Quarter: 2018Q3

REPORT INFORMATION
  Report Type: Spontaneous
  Country: US (occurrence: US)
  Receive Date: 20180904
  Receipt Date: 20180904
  Transmission Date: 20181010
  Serious: Yes (Other)
  Sender: FDA-Public Use
  Company Number: US-LPDUSPRD-20181620

PATIENT
  Age: 76 Year
  Sex: Female

DRUGS (1)
  1. LIDOCAINE HCL INJECTION, USP (0517?9402?01) [Suspect]
     Active Substance: LIDOCAINE HYDROCHLORIDE
     Dosage: UNKNOWN
     Route: 040

REACTIONS (5)
  - Product use in unapproved indication [Unknown]
  - Toxicity to various agents [Unknown]
  - Nervous system disorder [Unknown]
  - Aphasia [Unknown]
  - Confusional state [Unknown]
